FAERS Safety Report 23865589 (Version 1)
Quarter: 2024Q2

REPORT INFORMATION
  Report Type: Spontaneous
  Country: US (occurrence: US)
  Receive Date: 20240517
  Receipt Date: 20240517
  Transmission Date: 20240716
  Serious: No
  Sender: FDA-Public Use
  Company Number: US-BEIGENE-BGN-2024-007143

PATIENT

DRUGS (1)
  1. BRUKINSA [Suspect]
     Active Substance: ZANUBRUTINIB
     Indication: Lymphoma
     Dosage: 80 MILLIGRAM, BID
     Route: 048
     Dates: start: 20240414, end: 20240419

REACTIONS (4)
  - Rash [Recovered/Resolved]
  - Pruritus [Unknown]
  - Insomnia [Unknown]
  - Erythema [Unknown]

NARRATIVE: CASE EVENT DATE: 20240414
